FAERS Safety Report 12224278 (Version 1)
Quarter: 2016Q1

REPORT INFORMATION
  Report Type: Spontaneous
  Country: US (occurrence: US)
  Receive Date: 20160331
  Receipt Date: 20160331
  Transmission Date: 20160526
  Serious: Yes (Hospitalization)
  Sender: FDA-Public Use
  Company Number: US-AMGEN-USASP2016038489

PATIENT
  Age: 78 Year
  Sex: Female
  Weight: 41.72 kg

DRUGS (1)
  1. NEULASTA [Suspect]
     Active Substance: PEGFILGRASTIM
     Indication: PRODUCT USED FOR UNKNOWN INDICATION
     Dosage: UNK, 12 DAYS AFTER CHEMOTHERAPY ENDS
     Route: 065

REACTIONS (4)
  - Inappropriate schedule of drug administration [Unknown]
  - Renal failure [Unknown]
  - White blood cell count increased [Unknown]
  - Weight increased [Not Recovered/Not Resolved]
